FAERS Safety Report 19418177 (Version 3)
Quarter: 2021Q4

REPORT INFORMATION
  Report Type: Spontaneous
  Country: US (occurrence: US)
  Receive Date: 20210615
  Receipt Date: 20211214
  Transmission Date: 20220303
  Serious: No
  Sender: FDA-Public Use
  Company Number: US-GLOBAL BLOOD THERAPEUTICS INC-US-GBT-21-01022

PATIENT
  Sex: Female

DRUGS (3)
  1. OXBRYTA [Suspect]
     Active Substance: VOXELOTOR
     Indication: Product used for unknown indication
     Route: 048
  2. OXBRYTA [Suspect]
     Active Substance: VOXELOTOR
     Route: 048
  3. BETHANECHOL [Concomitant]
     Active Substance: BETHANECHOL
     Indication: Product used for unknown indication
     Dosage: NOT PROVIDED

REACTIONS (9)
  - Skin mass [Unknown]
  - Burning sensation [Unknown]
  - Pain in extremity [Unknown]
  - Nerve compression [Unknown]
  - Sickle cell anaemia with crisis [Unknown]
  - Urinary tract infection [Not Recovered/Not Resolved]
  - Haemoglobin decreased [Not Recovered/Not Resolved]
  - Frequent bowel movements [Unknown]
  - Off label use [Unknown]

NARRATIVE: CASE EVENT DATE: 20210101
